FAERS Safety Report 5968598-X (Version None)
Quarter: 2008Q4

REPORT INFORMATION
  Report Type: 
  Country: None (occurrence: None)
  Receive Date: 20081126
  Receipt Date: 20081119
  Transmission Date: 20090506
  Serious: Yes (Hospitalization)
  Sender: FDA-Public Use
  Company Number: CG-MERCK-0811USA03641

PATIENT
  Age: 24 Year
  Sex: Female

DRUGS (1)
  1. STROMECTOL [Suspect]
     Indication: ONCHOCERCIASIS
     Route: 048
     Dates: start: 20080715, end: 20080715

REACTIONS (9)
  - ABNORMAL BEHAVIOUR [None]
  - ANOREXIA [None]
  - BLOOD PRESSURE ABNORMAL [None]
  - CONJUNCTIVAL HAEMORRHAGE [None]
  - FAECAL INCONTINENCE [None]
  - HEADACHE [None]
  - HEART RATE INCREASED [None]
  - PYREXIA [None]
  - VERTIGO [None]
